FAERS Safety Report 10275143 (Version 3)
Quarter: 2014Q3

REPORT INFORMATION
  Report Type: Spontaneous
  Country: US (occurrence: US)
  Receive Date: 20140703
  Receipt Date: 20140714
  Transmission Date: 20150326
  Serious: Yes (Other)
  Sender: FDA-Public Use
  Company Number: US-BEH-2014043380

PATIENT
  Age: 24 Year
  Sex: Female

DRUGS (1)
  1. INTRAVENOUS IMMUNOGLOBULIN [Suspect]
     Active Substance: HUMAN IMMUNOGLOBULIN G
     Indication: MYASTHENIA GRAVIS

REACTIONS (8)
  - Haptoglobin decreased [Recovered/Resolved]
  - Chromaturia [Recovered/Resolved]
  - Coombs direct test positive [Recovered/Resolved]
  - Haemoglobin decreased [Recovered/Resolved]
  - Spherocytic anaemia [Recovered/Resolved]
  - Haemolytic anaemia [Recovered/Resolved]
  - Reticulocyte count increased [Recovered/Resolved]
  - Haematocrit decreased [Recovered/Resolved]
